FAERS Safety Report 9119323 (Version 1)
Quarter: 2013Q1

REPORT INFORMATION
  Report Type: Spontaneous
  Country: US (occurrence: None)
  Receive Date: 20130221
  Receipt Date: 20130221
  Transmission Date: 20140127
  Serious: Yes (Other)
  Sender: FDA-Public Use
  Company Number: None

PATIENT
  Age: 41 Year
  Sex: Female
  Weight: 68.04 kg

DRUGS (1)
  1. VIIBRYD [Suspect]
     Route: 048
     Dates: start: 20121030, end: 20130115

REACTIONS (6)
  - Tremor [None]
  - Paraesthesia [None]
  - Dysstasia [None]
  - Hallucination [None]
  - Movement disorder [None]
  - Convulsion [None]
